FAERS Safety Report 9846804 (Version 1)
Quarter: 2013Q4

REPORT INFORMATION
  Report Type: Spontaneous
  Country: US (occurrence: None)
  Receive Date: 20131219
  Receipt Date: 20131219
  Transmission Date: 20140711
  Serious: Yes (Death)
  Sender: FDA-Public Use
  Company Number: 163-20785-13073218

PATIENT
  Age: 70 Year
  Sex: Male

DRUGS (12)
  1. THALOMID (THALIDOMIDE) (100 MILLIGRAM, CAPSULES) [Suspect]
     Indication: PLASMA CELL MYELOMA
     Dosage: 100 MG, 1 IN 1 D, PO
     Route: 048
     Dates: start: 20130613
  2. CIMBALTA (DULOXETINE HYDROCHLORIDE) (CAPSULES) [Concomitant]
  3. PANTOPRAZOLE SODIUM (PANTOPRAZOLE SODIUM) (TABLETS) [Concomitant]
  4. GABAPENTIN (GABAPENTIN) (CAPSULES) [Concomitant]
  5. CEFDINIR (CEFDINIR) (CAPSULES) [Concomitant]
  6. ONDANSETRON HCL (ONDANSETRON HYDROCHLORIDE) (TABLETS) [Concomitant]
  7. LEVOFLOXACIN (LEVOFLOXACIN) (TABLETS) [Concomitant]
  8. FLUCONAZOLE (FLUCONAZOLE) (TABLETS) [Concomitant]
  9. HYDROCODONE-ACETAMINOPHEN (VICODIN) [Concomitant]
  10. ACYCLOVIR (ACICLOVIR) (TABLETS) [Concomitant]
  11. PROSVENT (HERBAL) (UNKNOWN0 [Concomitant]
  12. ERCO 7+ TCRPH26 (ERGOMETRINE MALEATE) (UNKNOWN) [Concomitant]

REACTIONS (1)
  - Death [None]
